FAERS Safety Report 6258970-5 (Version None)
Quarter: 2009Q3

REPORT INFORMATION
  Report Type: 
  Country: None (occurrence: None)
  Receive Date: 20090707
  Receipt Date: 20090629
  Transmission Date: 20100115
  Serious: Yes (Hospitalization)
  Sender: FDA-Public Use
  Company Number: US-GENENTECH-285999

PATIENT
  Age: 69 Year
  Sex: Female

DRUGS (2)
  1. BEVACIZUMAB [Suspect]
     Indication: BREAST CANCER
     Dosage: 10 MG/KG, DAYS 1+15
     Route: 042
     Dates: start: 20090427, end: 20090427
  2. IXABEPILONE [Suspect]
     Indication: BREAST CANCER
     Dosage: 16 MG/M2, DAYS1,8,15
     Route: 042
     Dates: start: 20090427, end: 20090504

REACTIONS (1)
  - GRAND MAL CONVULSION [None]
